FAERS Safety Report 11868517 (Version 1)
Quarter: 2015Q4

REPORT INFORMATION
  Report Type: Spontaneous
  Country: US (occurrence: US)
  Receive Date: 20151225
  Receipt Date: 20151225
  Transmission Date: 20160305
  Serious: No
  Sender: FDA-Public Use
  Company Number: US-DRREDDYS-USA/USA/15/0047131

PATIENT
  Age: 61 Year
  Sex: Male
  Weight: 70.3 kg

DRUGS (3)
  1. SIMVASTATIN 20 MG [Concomitant]
     Active Substance: SIMVASTATIN
     Indication: PRODUCT USED FOR UNKNOWN INDICATION
     Route: 065
     Dates: start: 20150331
  2. HABITROL [Suspect]
     Active Substance: NICOTINE
     Indication: SMOKING CESSATION THERAPY
     Route: 061
     Dates: start: 20150401
  3. ASPIRIN. [Concomitant]
     Active Substance: ASPIRIN
     Indication: PRODUCT USED FOR UNKNOWN INDICATION
     Route: 065
     Dates: start: 20150331

REACTIONS (3)
  - Drug dose omission [Unknown]
  - Product quality issue [Unknown]
  - Nicotine dependence [Not Recovered/Not Resolved]

NARRATIVE: CASE EVENT DATE: 20150401
